FAERS Safety Report 7817289-9 (Version None)
Quarter: 2011Q4

REPORT INFORMATION
  Report Type: 
  Country: None (occurrence: None)
  Receive Date: 20111017
  Receipt Date: 20111011
  Transmission Date: 20120403
  Serious: Yes (Other)
  Sender: FDA-Public Use
  Company Number: NL-PFIZER INC-2011243243

PATIENT
  Age: 60 Year
  Sex: Male

DRUGS (3)
  1. LIPITOR [Suspect]
     Indication: PROPHYLAXIS
     Dosage: 20 MG, 1X/DAY
     Dates: start: 20110907
  2. PERSANTIN [Concomitant]
     Dosage: 200 MG, 2X/DAY
     Dates: start: 20090618
  3. CARBASALATE CALCIUM [Concomitant]
     Dosage: 100 MG, 1X/DAY
     Dates: start: 20090618

REACTIONS (1)
  - POLYNEUROPATHY [None]
